FAERS Safety Report 20761231 (Version 1)
Quarter: 2022Q2

REPORT INFORMATION
  Report Type: Spontaneous
  Country: NL (occurrence: NL)
  Receive Date: 20220428
  Receipt Date: 20220428
  Transmission Date: 20220720
  Serious: Yes (Other)
  Sender: FDA-Public Use
  Company Number: None

PATIENT
  Age: 77 Year
  Sex: Female

DRUGS (4)
  1. ROSUVASTATIN [Suspect]
     Active Substance: ROSUVASTATIN
     Indication: Hypercholesterolaemia
     Dosage: 1 TABLET PER DAY,  BRAND NAME NOT SPECIFIED,
     Dates: start: 20170921, end: 20220331
  2. OMEPRAZOLE [Concomitant]
     Active Substance: OMEPRAZOLE
     Dosage: FORM STRENGTH  40MG / BRAND NAME NOT SPECIFIED, THERAPY START DATE AND END DATE: ASKU
  3. CALCIUM\CHOLECALCIFEROL [Concomitant]
     Active Substance: CALCIUM\CHOLECALCIFEROL
     Dosage: FORM STRENGTH 2.5G/800IE (1000MG CA) /1000MG/800IE, THERAPY START DATE AND END DATE: ASKU
  4. BISOPROLOL [Concomitant]
     Active Substance: BISOPROLOL
     Dosage: FORM STRENGTH 5MG / BRAND NAME NOT SPECIFIED, THERAPY START DATE AND END DATE: ASKU

REACTIONS (2)
  - Hallucination, visual [Recovered/Resolved]
  - Aura [Recovered/Resolved]

NARRATIVE: CASE EVENT DATE: 20211215
